FAERS Safety Report 14624720 (Version 2)
Quarter: 2019Q2

REPORT INFORMATION
  Report Type: Spontaneous
  Country: US (occurrence: US)
  Receive Date: 20180312
  Receipt Date: 20190611
  Transmission Date: 20190711
  Serious: Yes (Hospitalization)
  Sender: FDA-Public Use
  Company Number: PHEH2018US008587

PATIENT
  Age: 62 Year
  Sex: Female

DRUGS (2)
  1. KISQALI FEMARA CO-PACK [Suspect]
     Active Substance: LETROZOLE\RIBOCICLIB
     Indication: BREAST CANCER METASTATIC
     Dosage: UNK (DAILY FOR 3 WEEKS AND 1 WEEK OFF/ 28 DAYS)
     Route: 048
  2. KISQALI FEMARA CO-PACK [Suspect]
     Active Substance: LETROZOLE\RIBOCICLIB
     Indication: BREAST CANCER METASTATIC
     Dosage: UNK (DAILY FOR 3 WEEKS AND 1 WEEK OFF/ 28 DAYS)
     Route: 048

REACTIONS (2)
  - Renal failure [Unknown]
  - Blood creatinine increased [Unknown]

NARRATIVE: CASE EVENT DATE: 20170228
